FAERS Safety Report 13930803 (Version 1)
Quarter: 2017Q3

REPORT INFORMATION
  Report Type: Spontaneous
  Country: AU (occurrence: AU)
  Receive Date: 20170901
  Receipt Date: 20170901
  Transmission Date: 20171127
  Serious: Yes (Other)
  Sender: FDA-Public Use
  Company Number: AU-IPSEN BIOPHARMACEUTICALS, INC.-2017-09642

PATIENT
  Sex: Female

DRUGS (2)
  1. BOTULINUM TOXIN TYPE A NOS [Suspect]
     Active Substance: BOTULINUM TOXIN TYPE A
     Indication: HYPERTONIC BLADDER
     Dosage: 10 UNITS
     Route: 030
  2. BOTULINUM TOXIN TYPE A NOS [Suspect]
     Active Substance: BOTULINUM TOXIN TYPE A
     Indication: OFF LABEL USE

REACTIONS (4)
  - Drug ineffective for unapproved indication [Unknown]
  - Urinary tract infection [Unknown]
  - Off label use [Unknown]
  - Post micturition dribble [Unknown]
